FAERS Safety Report 7068897-7 (Version None)
Quarter: 2010Q4

REPORT INFORMATION
  Report Type: 
  Country: None (occurrence: None)
  Receive Date: 20101028
  Receipt Date: 20101015
  Transmission Date: 20110411
  Serious: Yes (Other)
  Sender: FDA-Public Use
  Company Number: US-SANOFI-AVENTIS-2010SA063685

PATIENT
  Age: 69 Year
  Sex: Male

DRUGS (6)
  1. MULTAQ [Suspect]
     Indication: ATRIAL FLUTTER
     Route: 048
     Dates: start: 20091201
  2. MULTAQ [Suspect]
     Indication: TACHYCARDIA
     Route: 048
     Dates: start: 20091201
  3. LIPITOR [Concomitant]
  4. ASPIRIN [Concomitant]
  5. METOPROLOL [Concomitant]
     Dosage: 25MG IN AM AND 50MG IN PM DAILY
  6. MULTI-VITAMINS [Concomitant]

REACTIONS (4)
  - CARTILAGE INJURY [None]
  - MYALGIA [None]
  - OEDEMA PERIPHERAL [None]
  - SWELLING [None]
